FAERS Safety Report 8542933-0 (Version None)
Quarter: 2012Q3

REPORT INFORMATION
  Report Type: 
  Country: None (occurrence: None)
  Receive Date: 20120716
  Receipt Date: 20120704
  Transmission Date: 20120928
  Serious: Yes (Hospitalization, Disabling, Other)
  Sender: FDA-Public Use
  Company Number: AUR-APL-2012-02632

PATIENT
  Age: 54 Year
  Sex: Female

DRUGS (3)
  1. RISPERIDONE [Suspect]
     Indication: SCHIZOPHRENIA, PARANOID TYPE
     Dosage: ORAL
     Route: 048
  2. RISPERDAL CONSTA [Suspect]
     Indication: SCHIZOPHRENIA, PARANOID TYPE
     Dosage: 3.5714 MG (50 MG,1 IN 2 WK), INTRAMUSCULAR
     Route: 030
  3. RISPERDAL CONSTA [Suspect]

REACTIONS (9)
  - MUSCULOSKELETAL STIFFNESS [None]
  - ABASIA [None]
  - ADVERSE DRUG REACTION [None]
  - FALL [None]
  - BALANCE DISORDER [None]
  - MOVEMENT DISORDER [None]
  - INCORRECT DRUG DOSAGE FORM ADMINISTERED [None]
  - THERMAL BURN [None]
  - PRODUCT QUALITY ISSUE [None]
